FAERS Safety Report 11369851 (Version 1)
Quarter: 2015Q3

REPORT INFORMATION
  Report Type: Spontaneous
  Country: US (occurrence: US)
  Receive Date: 20150812
  Receipt Date: 20150812
  Transmission Date: 20151125
  Serious: Yes (Other)
  Sender: FDA-Public Use
  Company Number: US-JNJFOC-20150603073

PATIENT
  Age: 79 Year
  Sex: Female

DRUGS (1)
  1. DOXORUBICIN HYDROCHLORIDE. [Suspect]
     Active Substance: DOXORUBICIN HYDROCHLORIDE
     Indication: GENITAL NEOPLASM MALIGNANT FEMALE
     Dosage: CUMULATIVE DOSE
     Route: 042

REACTIONS (2)
  - Off label use [Unknown]
  - Ejection fraction decreased [Unknown]
